FAERS Safety Report 19868932 (Version 1)
Quarter: 2021Q3

REPORT INFORMATION
  Report Type: Spontaneous
  Country: IT (occurrence: IT)
  Receive Date: 20210922
  Receipt Date: 20210922
  Transmission Date: 20211014
  Serious: Yes (Other)
  Sender: FDA-Public Use
  Company Number: IT-B.I. PHARMACEUTICALS,INC./RIDGEFIELD-2021-BI-127411

PATIENT
  Sex: Female

DRUGS (2)
  1. GILOTRIF [Suspect]
     Active Substance: AFATINIB
     Indication: PRODUCT USED FOR UNKNOWN INDICATION
     Route: 065
     Dates: start: 20141016
  2. GILOTRIF [Suspect]
     Active Substance: AFATINIB
     Dosage: DOSE HAS BEEN REDUCED TO 20MG MORE THAN ONE YEAR AGO
     Route: 065

REACTIONS (1)
  - Malignant neoplasm progression [Unknown]
